FAERS Safety Report 12614240 (Version 1)
Quarter: 2016Q3

REPORT INFORMATION
  Report Type: Spontaneous
  Country: US (occurrence: None)
  Receive Date: 20160801
  Receipt Date: 20160801
  Transmission Date: 20161109
  Serious: Yes (Hospitalization)
  Sender: FDA-Public Use
  Company Number: None

PATIENT
  Age: 68 Year
  Sex: Female
  Weight: 60.8 kg

DRUGS (2)
  1. CYCLOPHOSPHAMIDE. [Suspect]
     Active Substance: CYCLOPHOSPHAMIDE
     Dates: end: 20160712
  2. DOXORUBICIN HYDROCHLORIDE. [Suspect]
     Active Substance: DOXORUBICIN HYDROCHLORIDE
     Dates: end: 20160712

REACTIONS (10)
  - Gastric ulcer [None]
  - Head injury [None]
  - Blood urea increased [None]
  - White blood cell count increased [None]
  - Haematochezia [None]
  - Dyspnoea [None]
  - Abdominal pain upper [None]
  - Helicobacter test positive [None]
  - Syncope [None]
  - Haemoglobin decreased [None]

NARRATIVE: CASE EVENT DATE: 20160717
